APPROVED DRUG PRODUCT: QUETIAPINE FUMARATE
Active Ingredient: QUETIAPINE FUMARATE
Strength: EQ 50MG BASE
Dosage Form/Route: TABLET, EXTENDED RELEASE;ORAL
Application: A211144 | Product #001 | TE Code: AB
Applicant: RISING PHARMA HOLDINGS INC
Approved: Nov 26, 2024 | RLD: No | RS: No | Type: RX